FAERS Safety Report 6174351-7 (Version None)
Quarter: 2009Q2

REPORT INFORMATION
  Report Type: 
  Country: None (occurrence: None)
  Receive Date: 20090424
  Receipt Date: 20081123
  Transmission Date: 20091009
  Serious: No
  Sender: FDA-Public Use
  Company Number: ALL1-2008-03398

PATIENT
  Sex: Female
  Weight: 24.9 kg

DRUGS (3)
  1. VYVANSE [Suspect]
     Indication: ATTENTION DEFICIT/HYPERACTIVITY DISORDER
     Dosage: 30 MG, 1X/DAY:QD, ORAL
     Route: 048
     Dates: start: 20080801
  2. CLONIDINE [Concomitant]
  3. MULTIVITAMIN [Concomitant]

REACTIONS (4)
  - AGGRESSION [None]
  - ANOREXIA [None]
  - INSOMNIA [None]
  - MOOD ALTERED [None]
